FAERS Safety Report 18796929 (Version 1)
Quarter: 2021Q1

REPORT INFORMATION
  Report Type: Report from Study
  Country: DE (occurrence: DE)
  Receive Date: 20210127
  Receipt Date: 20210127
  Transmission Date: 20210419
  Serious: Yes (Hospitalization)
  Sender: FDA-Public Use
  Company Number: DE-BEIGENE AUS PTY LTD-BGN-2020-001045

PATIENT

DRUGS (11)
  1. ZANUBRUTINIB [Suspect]
     Active Substance: ZANUBRUTINIB
     Indication: RICHTER^S SYNDROME
     Dosage: 320 MILLIGRAM
     Route: 048
     Dates: start: 20200325
  2. METOPROLOL. [Concomitant]
     Active Substance: METOPROLOL
  3. L?THYROXIN [Concomitant]
     Active Substance: LEVOTHYROXINE SODIUM
  4. PANTOZOL [Concomitant]
     Active Substance: PANTOPRAZOLE SODIUM
  5. TORASEMID [Concomitant]
     Active Substance: TORSEMIDE
  6. CLEXANE [Concomitant]
     Active Substance: ENOXAPARIN SODIUM
  7. AMPHO MORONAL [Concomitant]
     Active Substance: AMPHOTERICIN B
  8. CANDESARTAN. [Concomitant]
     Active Substance: CANDESARTAN
  9. TISLELIZUMAB [Suspect]
     Active Substance: TISLELIZUMAB
     Indication: RICHTER^S SYNDROME
     Dosage: 200 MILLIGRAM
     Route: 042
     Dates: start: 20200325
  10. ACICLOVIR [Concomitant]
     Active Substance: ACYCLOVIR
  11. COTRIM FORTE [Concomitant]
     Active Substance: SULFAMETHOXAZOLE\TRIMETHOPRIM

REACTIONS (1)
  - Chronic gastritis [Recovered/Resolved]

NARRATIVE: CASE EVENT DATE: 20200618
